FAERS Safety Report 10395517 (Version 1)
Quarter: 2014Q1

REPORT INFORMATION
  Report Type: Spontaneous
  Country: US (occurrence: None)
  Receive Date: 20130212
  Receipt Date: 20130212
  Transmission Date: 20141002
  Serious: Yes (Other)
  Sender: FDA-Public Use
  Company Number: 2012P1061225

PATIENT
  Age: 16 Year
  Sex: Male

DRUGS (2)
  1. MYORISAN 10 MG [Suspect]
     Indication: ACNE
     Route: 048
     Dates: start: 20120629, end: 201207
  2. UNSPECIFIED TOPICAL TREATMENT FOR HIDRADENITIS SUPPURATIVA [Concomitant]

REACTIONS (3)
  - Headache [None]
  - Benign intracranial hypertension [None]
  - Visual impairment [None]
